FAERS Safety Report 9234309 (Version 1)
Quarter: 2013Q2

REPORT INFORMATION
  Report Type: Spontaneous
  Country: CN (occurrence: CN)
  Receive Date: 20130416
  Receipt Date: 20130416
  Transmission Date: 20140414
  Serious: Yes (Hospitalization, Other)
  Sender: FDA-Public Use
  Company Number: CN-ASTRAZENECA-2013SE22622

PATIENT
  Sex: Female

DRUGS (1)
  1. DIPRIVAN [Suspect]
     Indication: ABORTION INDUCED
     Dosage: 20 ML/ DOSE
     Route: 042

REACTIONS (3)
  - Tremor [Not Recovered/Not Resolved]
  - Nervous system disorder [Unknown]
  - Conversion disorder [Unknown]
